FAERS Safety Report 5729245-5 (Version None)
Quarter: 2008Q2

REPORT INFORMATION
  Report Type: 
  Country: None (occurrence: None)
  Receive Date: 20080430
  Receipt Date: 20071230
  Transmission Date: 20081010
  Serious: No
  Sender: FDA-Public Use
  Company Number: 2007PV033893

PATIENT
  Age: 74 Year
  Sex: Female
  Weight: 79.3795 kg

DRUGS (13)
  1. SYMLIN [Suspect]
     Indication: TYPE 2 DIABETES MELLITUS
     Dosage: 120 MCG;TID;SC
     Route: 058
     Dates: start: 20070101
  2. HUMULIN N [Concomitant]
  3. PLAVIX [Concomitant]
  4. FOLIC ACID [Concomitant]
  5. LASIX [Concomitant]
  6. ALTACE [Concomitant]
  7. POTASSIUM CHLORIDE [Concomitant]
  8. VYTORIN 10 [Concomitant]
  9. COREG [Concomitant]
  10. ISOSORBIDE DINITRATE [Concomitant]
  11. ASPIRIN [Concomitant]
  12. E-VITAMIN [Concomitant]
  13. FLAX/FISH OIL/BORIC SUPPLEMENT [Concomitant]

REACTIONS (4)
  - BLOOD GLUCOSE INCREASED [None]
  - DEPRESSED MOOD [None]
  - HEADACHE [None]
  - VISION BLURRED [None]
